FAERS Safety Report 16119625 (Version 1)
Quarter: 2019Q1

REPORT INFORMATION
  Report Type: Report from Study
  Country: GB (occurrence: GB)
  Receive Date: 20190326
  Receipt Date: 20190326
  Transmission Date: 20190418
  Serious: Yes (Hospitalization, Other)
  Sender: FDA-Public Use
  Company Number: GB-ALEXION-A201817024

PATIENT
  Age: 41 Year
  Sex: Female

DRUGS (2)
  1. SOLIRIS [Suspect]
     Active Substance: ECULIZUMAB
     Dosage: 900 MG, Q2W
     Route: 065
     Dates: start: 20130919
  2. SOLIRIS [Suspect]
     Active Substance: ECULIZUMAB
     Indication: PAROXYSMAL NOCTURNAL HAEMOGLOBINURIA
     Dosage: 600 MG, QW
     Route: 065
     Dates: start: 20130821, end: 20130912

REACTIONS (40)
  - Shock [Unknown]
  - Loss of control of legs [Unknown]
  - Feeling cold [Unknown]
  - Muscular weakness [Unknown]
  - Lack of spontaneous speech [Unknown]
  - Nausea [Unknown]
  - Pain in extremity [Unknown]
  - Cardiac flutter [Unknown]
  - Asthenia [Unknown]
  - Infusion related reaction [Unknown]
  - Heart rate increased [Unknown]
  - Fatigue [Unknown]
  - Diarrhoea [Unknown]
  - Hypersensitivity [Unknown]
  - Infusion site scar [Unknown]
  - Dehydration [Unknown]
  - Cyanosis [Unknown]
  - Palpitations [Unknown]
  - Dizziness [Unknown]
  - Product storage error [Unknown]
  - Discomfort [Unknown]
  - Seizure [Unknown]
  - Underdose [Unknown]
  - Chest discomfort [Unknown]
  - Vertigo [Unknown]
  - Respiratory distress [Unknown]
  - Malaise [Unknown]
  - Dry mouth [Unknown]
  - Anaphylactic reaction [Unknown]
  - Joint swelling [Unknown]
  - Paraesthesia [Unknown]
  - Chest pain [Unknown]
  - Coordination abnormal [Unknown]
  - General physical condition abnormal [Unknown]
  - Headache [Unknown]
  - Yellow skin [Unknown]
  - Ocular icterus [Unknown]
  - Retching [Unknown]
  - Incorrect product administration duration [Unknown]
  - Dyspnoea [Unknown]

NARRATIVE: CASE EVENT DATE: 20180621
